FAERS Safety Report 7675077-0 (Version None)
Quarter: 2011Q3

REPORT INFORMATION
  Report Type: 
  Country: None (occurrence: None)
  Receive Date: 20110810
  Receipt Date: 20110805
  Transmission Date: 20111222
  Serious: Yes (Disabling)
  Sender: FDA-Public Use
  Company Number: GB-MERCK-1108GBR00043

PATIENT
  Age: 53 Year
  Sex: Male
  Weight: 90 kg

DRUGS (6)
  1. JANUVIA [Suspect]
     Indication: DIABETES MELLITUS INADEQUATE CONTROL
     Route: 048
     Dates: start: 20091118, end: 20101101
  2. LISINOPRIL [Concomitant]
     Route: 048
  3. METFORMIN [Concomitant]
     Route: 065
  4. GLICLAZIDE [Concomitant]
     Route: 065
  5. LIRAGLUTIDE [Suspect]
     Indication: DIABETES MELLITUS
     Route: 058
     Dates: start: 20101101
  6. SIMVASTATIN [Concomitant]
     Route: 048

REACTIONS (3)
  - NEPHROPATHY TOXIC [None]
  - MYASTHENIA GRAVIS [None]
  - DIPLOPIA [None]
